FAERS Safety Report 10206404 (Version 4)
Quarter: 2014Q4

REPORT INFORMATION
  Report Type: Report from Study
  Country: GB (occurrence: GB)
  Receive Date: 20140530
  Receipt Date: 20141002
  Transmission Date: 20150528
  Serious: Yes (Other)
  Sender: FDA-Public Use
  Company Number: GB-JNJFOC-20140512461

PATIENT
  Age: 67 Year
  Sex: Female
  Weight: 100 kg

DRUGS (17)
  1. TIMOLOL [Concomitant]
     Active Substance: TIMOLOL
     Dosage: 0.4 ML UNIT DOSE
     Route: 047
     Dates: start: 20100205
  2. GLYCERYL TRINITRATE [Concomitant]
     Active Substance: NITROGLYCERIN
     Dosage: 1 OR 2 SPRAYS UNDER THE TONGUE WHEN REQUIRED 1 SPRAY (200 DOSES)
     Route: 065
     Dates: start: 20090424
  3. BIMATOPROST. [Concomitant]
     Active Substance: BIMATOPROST
     Dosage: 0,4 ML UNIT DOSE, 9 ML
     Route: 047
     Dates: start: 20100205
  4. TIMOLOL [Concomitant]
     Active Substance: TIMOLOL
     Route: 047
     Dates: start: 20140318
  5. CLOPIDOGREL [Concomitant]
     Active Substance: CLOPIDOGREL BISULFATE
     Dosage: 56 TABLETS
     Route: 065
     Dates: start: 20090424
  6. LEVOTHYROXINE SODIUM. [Concomitant]
     Active Substance: LEVOTHYROXINE SODIUM
     Dosage: 56 TABLETS
     Route: 065
     Dates: start: 20130726
  7. STELARA [Suspect]
     Active Substance: USTEKINUMAB
     Indication: PSORIASIS
     Route: 058
     Dates: start: 201102
  8. CLOBETASOL [Concomitant]
     Active Substance: CLOBETASOL
     Route: 065
  9. DIPROSALIC [Concomitant]
     Active Substance: BETAMETHASONE DIPROPIONATE
     Dosage: 0.05% PLUSE 3%
     Route: 065
     Dates: start: 20121205
  10. TELMISARTAN. [Concomitant]
     Active Substance: TELMISARTAN
     Dosage: 56 TABLETS
     Route: 065
     Dates: start: 20070813
  11. TRIMETHOPRIM. [Concomitant]
     Active Substance: TRIMETHOPRIM
     Dosage: 56 TABLETS
     Route: 065
     Dates: start: 20120710
  12. CIPROFLOXACIN. [Concomitant]
     Active Substance: CIPROFLOXACIN
     Dosage: 6 TABLETS
     Route: 048
     Dates: start: 20121008
  13. CLOTRIMAZOLE. [Concomitant]
     Active Substance: CLOTRIMAZOLE
     Route: 065
     Dates: start: 20140121
  14. BISOPROLOL FUMARATE. [Concomitant]
     Active Substance: BISOPROLOL FUMARATE
     Dosage: 56 TABLETS
     Route: 065
     Dates: start: 20090720
  15. ATORVASTATIN [Concomitant]
     Active Substance: ATORVASTATIN
     Dosage: 56 TABLETS
     Route: 065
     Dates: start: 20060110
  16. BIMATOPROST. [Concomitant]
     Active Substance: BIMATOPROST
     Route: 047
     Dates: start: 20140318
  17. BETAMETHASONE DIPROPIONATE. [Concomitant]
     Active Substance: BETAMETHASONE DIPROPIONATE
     Route: 065
     Dates: start: 20140121

REACTIONS (8)
  - Type 2 diabetes mellitus [Unknown]
  - Investigation [Unknown]
  - Seasonal allergy [Recovered/Resolved]
  - Influenza [Recovered/Resolved]
  - Dysphonia [Recovered/Resolved]
  - Calculus ureteric [Unknown]
  - Pyelonephritis [Unknown]
  - Lower respiratory tract infection [Recovered/Resolved]

NARRATIVE: CASE EVENT DATE: 20110727
